FAERS Safety Report 7079628-9 (Version None)
Quarter: 2010Q4

REPORT INFORMATION
  Report Type: 
  Country: None (occurrence: None)
  Receive Date: 20101102
  Receipt Date: 20101020
  Transmission Date: 20110411
  Serious: Yes (Hospitalization, Other)
  Sender: FDA-Public Use
  Company Number: PHHY2010CA70310

PATIENT
  Sex: Male

DRUGS (1)
  1. CLOZARIL [Suspect]
     Indication: SCHIZOPHRENIA
     Dosage: 300 MG, QD
     Route: 048
     Dates: start: 20001012, end: 20100929

REACTIONS (6)
  - BLADDER CANCER [None]
  - BLADDER OPERATION [None]
  - FAILURE TO THRIVE [None]
  - METASTASES TO LUNG [None]
  - PROSTATE CANCER [None]
  - PULMONARY MASS [None]
